FAERS Safety Report 8866933 (Version 1)
Quarter: 2012Q4

REPORT INFORMATION
  Report Type: 
  Country: US (occurrence: US)
  Receive Date: 20121025
  Receipt Date: 20121025
  Transmission Date: 20130627
  Serious: No
  Sender: FDA-Public Use
  Company Number: US-AMGEN-USASP2012013923

PATIENT
  Age: 8 Year
  Sex: Male
  Weight: 40.82 kg

DRUGS (1)
  1. ENBREL [Suspect]
     Indication: JUVENILE ARTHRITIS
     Dosage: 30 mg, qwk
     Dates: start: 20080101

REACTIONS (1)
  - Nasopharyngitis [Recovered/Resolved]
